FAERS Safety Report 8582681 (Version 2)
Quarter: 2014Q1

REPORT INFORMATION
  Report Type: Spontaneous
  Country: FR (occurrence: None)
  Receive Date: 20120511
  Receipt Date: 20140129
  Transmission Date: 20141002
  Serious: Yes (Other)
  Sender: FDA-Public Use
  Company Number: FK201200518

PATIENT
  Age: 60 Year
  Sex: Female

DRUGS (6)
  1. VOLUVEN [Suspect]
     Indication: PRODUCT USED FOR UNKNOWN INDICATION
     Dosage: INTRAVENOUS (NOT OTHERWISE SPECIFIED)
     Route: 042
     Dates: start: 20111128, end: 20111128
  2. ALBUMIN [Suspect]
     Indication: PRODUCT USED FOR UNKNOWN INDICATION
     Dosage: INTRAVENOUS (NOT OTHERWISE SPECIFIED)
     Route: 042
     Dates: start: 20101014, end: 20101014
  3. PRAVASTATIN [Concomitant]
  4. LEXOMILE ROCHE (BROMAZEPAM) [Concomitant]
  5. AERIUS (EBASTINE) [Concomitant]
  6. LODOZ (BISELECT /01166101/) [Concomitant]

REACTIONS (5)
  - Hypotension [None]
  - Hypersensitivity [None]
  - Septic shock [None]
  - Anastomotic complication [None]
  - Procedural complication [None]
